FAERS Safety Report 5373220-X (Version None)
Quarter: 2007Q2

REPORT INFORMATION
  Report Type: 
  Country: None (occurrence: None)
  Receive Date: 20070628
  Receipt Date: 20070620
  Transmission Date: 20071010
  Serious: Yes (Other)
  Sender: FDA-Public Use
  Company Number: PHEH2007US07628

PATIENT
  Age: 50 Year
  Sex: Female

DRUGS (1)
  1. ZELNORM [Suspect]
     Indication: IRRITABLE BOWEL SYNDROME
     Dosage: 6 MG, BID
     Route: 048
     Dates: start: 20050101, end: 20070401

REACTIONS (4)
  - ABDOMINAL PAIN [None]
  - CATHETERISATION CARDIAC ABNORMAL [None]
  - CHEST PAIN [None]
  - VENOUS OCCLUSION [None]
